FAERS Safety Report 5970021-6 (Version None)
Quarter: 2008Q4

REPORT INFORMATION
  Report Type: 
  Country: None (occurrence: None)
  Receive Date: 20081126
  Receipt Date: 20081119
  Transmission Date: 20090506
  Serious: Yes (Death, Hospitalization)
  Sender: FDA-Public Use
  Company Number: CG-MERCK-0811USA03645

PATIENT
  Age: 12 Year
  Sex: Female

DRUGS (4)
  1. STROMECTOL [Suspect]
     Indication: ONCHOCERCIASIS
     Route: 048
     Dates: start: 20080717, end: 20080717
  2. DEXTROSE AND SODIUM CHLORIDE [Concomitant]
     Route: 065
  3. QUININE [Concomitant]
     Route: 065
  4. ACETAMINOPHEN [Concomitant]
     Route: 065

REACTIONS (10)
  - ABDOMINAL PAIN UPPER [None]
  - COMA [None]
  - DEATH [None]
  - EYELID OEDEMA [None]
  - HYPERREFLEXIA [None]
  - HYPOTENSION [None]
  - NUCHAL RIGIDITY [None]
  - PULSE ABNORMAL [None]
  - PYREXIA [None]
  - VITAL CAPACITY DECREASED [None]
